FAERS Safety Report 4582385-9 (Version None)
Quarter: 2005Q1

REPORT INFORMATION
  Report Type: 
  Country: None (occurrence: None)
  Receive Date: 20050125
  Receipt Date: 20040825
  Transmission Date: 20050727
  Serious: No
  Sender: FDA-Public Use
  Company Number: USA040876548

PATIENT
  Age: 58 Year
  Sex: Female

DRUGS (2)
  1. FORTEO [Suspect]
     Indication: BONE DENSITY DECREASED
     Dates: start: 20040701
  2. COZAAR [Concomitant]

REACTIONS (4)
  - BLOOD PRESSURE INCREASED [None]
  - EAR DISCOMFORT [None]
  - FAMILY STRESS [None]
  - NAUSEA [None]
